FAERS Safety Report 7278850-6 (Version None)
Quarter: 2010Q4

REPORT INFORMATION
  Report Type: 
  Country: None (occurrence: None)
  Receive Date: 20101206
  Receipt Date: 20101110
  Transmission Date: 20110411
  Serious: Yes (Hospitalization, Disabling)
  Sender: FDA-Public Use
  Company Number: 2010SP059741

PATIENT
  Sex: Male

DRUGS (2)
  1. SAPHRIS [Suspect]
     Indication: DEPRESSION
     Dosage: 5 MG;BID
  2. CYMBALTA [Concomitant]

REACTIONS (2)
  - HEPATIC ENZYME INCREASED [None]
  - OEDEMA PERIPHERAL [None]
